FAERS Safety Report 6854421-8 (Version None)
Quarter: 2010Q3

REPORT INFORMATION
  Report Type: 
  Country: None (occurrence: None)
  Receive Date: 20100717
  Receipt Date: 20071210
  Transmission Date: 20110219
  Serious: No
  Sender: FDA-Public Use
  Company Number: US-PFIZER INC-2008002225

PATIENT
  Age: 36 Year
  Sex: Female

DRUGS (9)
  1. CHANTIX [Suspect]
  2. SPIRIVA [Suspect]
     Route: 055
  3. PREDNISONE [Concomitant]
  4. LIPITOR [Concomitant]
  5. LOTREL [Concomitant]
  6. LISINOPRIL [Concomitant]
  7. ACETYLSALICYLIC ACID [Concomitant]
  8. MULTIVITAMIN [Concomitant]
  9. FELODIPINE [Concomitant]

REACTIONS (6)
  - ABNORMAL DREAMS [None]
  - DRY MOUTH [None]
  - FLATULENCE [None]
  - NAUSEA [None]
  - SALIVA ALTERED [None]
  - SLEEP DISORDER [None]
